FAERS Safety Report 9370535 (Version 1)
Quarter: 2013Q2

REPORT INFORMATION
  Report Type: Spontaneous
  Country: UY (occurrence: UY)
  Receive Date: 20130626
  Receipt Date: 20130626
  Transmission Date: 20140414
  Serious: Yes (Hospitalization)
  Sender: FDA-Public Use
  Company Number: UY-ABBOTT-13P-168-1093631-00

PATIENT
  Age: 46 Year
  Sex: Female

DRUGS (1)
  1. HUMIRA [Suspect]
     Indication: RHEUMATOID ARTHRITIS
     Dates: start: 20130201, end: 20130516

REACTIONS (3)
  - Diarrhoea [Recovered/Resolved]
  - Pruritus generalised [Not Recovered/Not Resolved]
  - Vomiting [Recovered/Resolved]
